FAERS Safety Report 17700760 (Version 4)
Quarter: 2020Q2

REPORT INFORMATION
  Report Type: Report from Study
  Country: None (occurrence: ES)
  Receive Date: 20200423
  Receipt Date: 20200507
  Transmission Date: 20200714
  Serious: Yes (Other)
  Sender: FDA-Public Use
  Company Number: ES-ABBVIE-20K-144-3375269-00

PATIENT
  Age: 59 Year
  Sex: Male

DRUGS (2)
  1. DUODOPA [Suspect]
     Active Substance: CARBIDOPA\LEVODOPA
     Indication: PARKINSON^S DISEASE
     Route: 050
     Dates: end: 20200423
  2. DUODOPA [Suspect]
     Active Substance: CARBIDOPA\LEVODOPA
     Dosage: DECREASE THE CONTINUOUS DOSE OF THE MORNING PUMP
     Route: 050
     Dates: start: 20200423

REACTIONS (5)
  - Abnormal behaviour [Recovered/Resolved]
  - Freezing phenomenon [Not Recovered/Not Resolved]
  - Somnolence [Unknown]
  - Therapeutic product effect variable [Unknown]
  - Hallucination [Recovered/Resolved]

NARRATIVE: CASE EVENT DATE: 2020
